FAERS Safety Report 9060892 (Version 3)
Quarter: 2013Q2

REPORT INFORMATION
  Report Type: Spontaneous
  Country: DE (occurrence: DE)
  Receive Date: 20130212
  Receipt Date: 20130506
  Transmission Date: 20140414
  Serious: Yes (Other)
  Sender: FDA-Public Use
  Company Number: DE-BRISTOL-MYERS SQUIBB COMPANY-17346123

PATIENT
  Age: 59 Year
  Sex: Female
  Weight: 65 kg

DRUGS (5)
  1. ELIQUIS [Suspect]
     Indication: POLYCYTHAEMIA VERA
     Dosage: 2.5MG?TABS
  2. HEPARIN SODIUM [Concomitant]
     Dosage: TAKNING HEPARIN INJ OVER 30 YRS
  3. FRAXIPARINE [Concomitant]
  4. CONCOR [Concomitant]
     Dosage: 1DF:5 UNITS NOS
  5. AMLODIPINE [Concomitant]
     Indication: HYPERTENSION

REACTIONS (4)
  - Swollen tongue [Recovered/Resolved]
  - Vertigo [Recovered/Resolved]
  - Nausea [Recovered/Resolved]
  - Off label use [Unknown]
